FAERS Safety Report 9690600 (Version 1)
Quarter: 2013Q4

REPORT INFORMATION
  Report Type: Spontaneous
  Country: US (occurrence: US)
  Receive Date: 20131115
  Receipt Date: 20131115
  Transmission Date: 20140711
  Serious: No
  Sender: FDA-Public Use
  Company Number: US-BAXTER-2013BAX042926

PATIENT
  Sex: Male

DRUGS (2)
  1. LACTATED RINGER^S INJECTION, USP [Suspect]
     Indication: PRODUCT USED FOR UNKNOWN INDICATION
     Route: 061
  2. LACTATED RINGER^S INJECTION, USP [Suspect]
     Indication: ACCIDENTAL EXPOSURE TO PRODUCT

REACTIONS (3)
  - Product outer packaging issue [Unknown]
  - Occupational exposure to product [Recovered/Resolved]
  - No adverse event [Recovered/Resolved]
